FAERS Safety Report 10383975 (Version 1)
Quarter: 2014Q3

REPORT INFORMATION
  Report Type: Spontaneous
  Country: VN (occurrence: VN)
  Receive Date: 20140814
  Receipt Date: 20140814
  Transmission Date: 20150326
  Serious: Yes (Other)
  Sender: FDA-Public Use
  Company Number: VN-ROCHE-1446109

PATIENT

DRUGS (7)
  1. DOXORUBICIN [Concomitant]
     Active Substance: DOXORUBICIN
     Dosage: DAY 1
     Route: 042
  2. LIPOSOMAL DOXORUBICIN [Concomitant]
     Active Substance: DOXORUBICIN HYDROCHLORIDE
     Dosage: 20-30 MG/M2, DAY 1
     Route: 042
  3. PREDNISONE. [Concomitant]
     Active Substance: PREDNISONE
     Dosage: DAY 1 TO DAY 5
     Route: 048
  4. VINCRISTINE [Concomitant]
     Active Substance: VINCRISTINE
     Dosage: 1,4 MG/M2, DAY 1
     Route: 042
  5. RITUXIMAB [Suspect]
     Active Substance: RITUXIMAB
     Indication: NON-HODGKIN^S LYMPHOMA
     Route: 041
  6. EPIRUBICIN [Concomitant]
     Active Substance: EPIRUBICIN
     Dosage: DAY 1
     Route: 042
  7. CYCLOPHOSPHAMIDE. [Concomitant]
     Active Substance: CYCLOPHOSPHAMIDE
     Dosage: DAY 1
     Route: 042

REACTIONS (4)
  - Neutropenia [Unknown]
  - Vomiting [Unknown]
  - Myocardial ischaemia [Unknown]
  - Transaminases increased [Unknown]
